FAERS Safety Report 7549531-6 (Version None)
Quarter: 2011Q2

REPORT INFORMATION
  Report Type: 
  Country: None (occurrence: None)
  Receive Date: 20110615
  Receipt Date: 20090511
  Transmission Date: 20111010
  Serious: Yes (Hospitalization)
  Sender: FDA-Public Use
  Company Number: A0785097A

PATIENT
  Age: 46 Year
  Sex: Female

DRUGS (1)
  1. AVANDIA [Suspect]
     Dosage: 4MG PER DAY
     Route: 048
     Dates: start: 20030201, end: 20060101

REACTIONS (5)
  - HEMIPARESIS [None]
  - CEREBROVASCULAR ACCIDENT [None]
  - STENT PLACEMENT [None]
  - GAIT DISTURBANCE [None]
  - AMNESIA [None]
